FAERS Safety Report 9296388 (Version 2)
Quarter: 2013Q2

REPORT INFORMATION
  Report Type: Spontaneous
  Country: BR (occurrence: BR)
  Receive Date: 20130517
  Receipt Date: 20130624
  Transmission Date: 20140414
  Serious: Yes (Hospitalization)
  Sender: FDA-Public Use
  Company Number: BR-009507513-1305BRA009905

PATIENT
  Age: 32 Year
  Sex: Female
  Weight: 102 kg

DRUGS (1)
  1. NUVARING [Suspect]
     Indication: CONTRACEPTION
     Dosage: UNK
     Route: 067
     Dates: start: 2010, end: 20130512

REACTIONS (7)
  - Angioedema [Recovering/Resolving]
  - Laryngeal oedema [Recovered/Resolved]
  - White blood cell disorder [Unknown]
  - C-reactive protein increased [Unknown]
  - Hepatic steatosis [Not Recovered/Not Resolved]
  - Blood cholesterol increased [Recovered/Resolved]
  - Blood triglycerides increased [Recovered/Resolved]
